FAERS Safety Report 5832927-8 (Version None)
Quarter: 2008Q3

REPORT INFORMATION
  Report Type: 
  Country: None (occurrence: None)
  Receive Date: 20080804
  Receipt Date: 20080711
  Transmission Date: 20090109
  Serious: No
  Sender: FDA-Public Use
  Company Number: US-BOEHRINGER INGELHEIM GMBH, GERMANY-2008-BP-11005BP

PATIENT
  Age: 79 Year
  Sex: Female

DRUGS (2)
  1. ZANTAC 75 [Suspect]
     Indication: STOMACH DISCOMFORT
     Route: 048
  2. ZANTAC 75 [Suspect]
     Indication: FLATULENCE

REACTIONS (1)
  - SKIN DISORDER [None]
